FAERS Safety Report 14559797 (Version 1)
Quarter: 2018Q1

REPORT INFORMATION
  Report Type: Spontaneous
  Country: US (occurrence: US)
  Receive Date: 20180221
  Receipt Date: 20180221
  Transmission Date: 20180509
  Serious: No
  Sender: FDA-Public Use
  Company Number: US-SA-2017SA030889

PATIENT

DRUGS (1)
  1. GAVISCON [Suspect]
     Active Substance: ALUMINUM HYDROXIDE\MAGNESIUM CARBONATE
     Dosage: DOSAGE STRENGTH 160 MG; 105 MG?DOSAGE FORM TABLET CHEWABLE,?WAFER
     Route: 065

REACTIONS (1)
  - Tooth fracture [Unknown]
